FAERS Safety Report 6056260-7 (Version None)
Quarter: 2009Q1

REPORT INFORMATION
  Report Type: 
  Country: None (occurrence: None)
  Receive Date: 20090126
  Receipt Date: 20090126
  Transmission Date: 20090719
  Serious: Yes (Other)
  Sender: FDA-Public Use
  Company Number: None

PATIENT
  Age: 60 Year
  Sex: Female
  Weight: 75.7 kg

DRUGS (1)
  1. VARENICLINE [Suspect]
     Indication: SMOKING CESSATION THERAPY
     Dosage: MG PO
     Route: 048
     Dates: start: 20071129, end: 20080229

REACTIONS (4)
  - FORMICATION [None]
  - NIGHTMARE [None]
  - PRURITUS [None]
  - URTICARIA [None]
